FAERS Safety Report 9563707 (Version 1)
Quarter: 2013Q3

REPORT INFORMATION
  Report Type: Spontaneous
  Country: US (occurrence: None)
  Receive Date: 20130912
  Receipt Date: 20130912
  Transmission Date: 20140515
  Serious: Yes (Hospitalization)
  Sender: FDA-Public Use
  Company Number: KAMADA LTD MFR # 41622

PATIENT
  Age: 52 Year
  Sex: Male
  Weight: 71.22 kg

DRUGS (8)
  1. GLASSIA [Suspect]
     Indication: ALPHA-1 ANTI-TRYPSIN DEFICIENCY
     Dosage: 4000 MG +/- 10% WEEKLY IV
     Route: 042
  2. SPIRIVA [Concomitant]
  3. ALBUTEROL SULFATE NEBULIZER INHALATION [Concomitant]
  4. ADVAIR [Concomitant]
  5. PREDNISONE [Concomitant]
  6. FLONASE [Concomitant]
  7. SYMBICORT [Concomitant]
  8. SINGULAIR [Concomitant]

REACTIONS (3)
  - Cough [None]
  - Fall [None]
  - Respiratory distress [None]
